FAERS Safety Report 25796752 (Version 2)
Quarter: 2025Q3

REPORT INFORMATION
  Report Type: Spontaneous
  Country: IN (occurrence: IN)
  Receive Date: 20250912
  Receipt Date: 20250925
  Transmission Date: 20251020
  Serious: Yes (Other)
  Sender: LUPIN
  Company Number: IN-LUPIN LIMITED-2025-08056

PATIENT
  Age: 28 Year
  Weight: 59 kg

DRUGS (3)
  1. ETHAMBUTOL HYDROCHLORIDE [Suspect]
     Active Substance: ETHAMBUTOL HYDROCHLORIDE
     Indication: Tuberculosis
     Dosage: 1 DOSAGE FORM, QD (1 TABLET ONCE A DAY IN THE MORNING)
  2. ISONIAZID\RIFAMPIN [Suspect]
     Active Substance: ISONIAZID\RIFAMPIN
     Indication: Tuberculosis
     Dosage: 1 DOSAGE FORM, QD (1 TABLET ONCE A DAY IN THE MORNING)
  3. MIRABEGRON [Concomitant]
     Active Substance: MIRABEGRON
     Indication: Urine abnormality
     Route: 065

REACTIONS (4)
  - Paraplegia [Unknown]
  - Chromaturia [Unknown]
  - Urinary incontinence [Unknown]
  - Gait disturbance [Unknown]
